FAERS Safety Report 15007229 (Version 2)
Quarter: 2019Q1

REPORT INFORMATION
  Report Type: Spontaneous
  Country: GR (occurrence: GR)
  Receive Date: 20180613
  Receipt Date: 20190116
  Transmission Date: 20190417
  Serious: Yes (Hospitalization)
  Sender: FDA-Public Use
  Company Number: GR-JNJFOC-20180608686

PATIENT
  Age: 55 Year
  Sex: Female

DRUGS (1)
  1. GOLIMUMAB [Suspect]
     Active Substance: GOLIMUMAB
     Indication: RHEUMATOID ARTHRITIS
     Route: 058

REACTIONS (4)
  - Incorrect dose administered [Unknown]
  - Arthritis bacterial [Unknown]
  - Pyoderma gangrenosum [Recovering/Resolving]
  - Off label use [Unknown]
